FAERS Safety Report 8883206 (Version 2)
Quarter: 2012Q4

REPORT INFORMATION
  Report Type: 
  Country: JP (occurrence: JP)
  Receive Date: 20121102
  Receipt Date: 20121123
  Transmission Date: 20130627
  Serious: Yes (Hospitalization)
  Sender: FDA-Public Use
  Company Number: JP-ABBOTT-12P-087-0996246-00

PATIENT
  Age: 78 Year
  Sex: Male

DRUGS (6)
  1. LEUPLIN [Suspect]
     Indication: PROSTATE CANCER
     Route: 058
     Dates: start: 20121005
  2. CEFAPICOL [Suspect]
     Indication: PRODUCT USED FOR UNKNOWN INDICATION
     Route: 041
     Dates: start: 20121006, end: 20121006
  3. MUCODYNE [Suspect]
     Indication: PRODUCT USED FOR UNKNOWN INDICATION
     Route: 048
     Dates: start: 20121006, end: 20121008
  4. PL GRAN. [Suspect]
     Indication: PRODUCT USED FOR UNKNOWN INDICATION
     Route: 048
     Dates: start: 20121006, end: 20121008
  5. GENINAX [Suspect]
     Indication: PRODUCT USED FOR UNKNOWN INDICATION
     Route: 048
     Dates: start: 20121006, end: 20121008
  6. ROCEPHIN [Suspect]
     Route: 041
     Dates: start: 20121007, end: 20121007

REACTIONS (3)
  - Diarrhoea [Recovering/Resolving]
  - Toxic skin eruption [Recovering/Resolving]
  - Pyrexia [Recovering/Resolving]
